FAERS Safety Report 18379256 (Version 1)
Quarter: 2020Q4

REPORT INFORMATION
  Report Type: Spontaneous
  Country: US (occurrence: US)
  Receive Date: 20201013
  Receipt Date: 20201013
  Transmission Date: 20210114
  Serious: Yes (Other)
  Sender: FDA-Public Use
  Company Number: US-MYLANLABS-2020M1086202

PATIENT
  Age: 46 Year
  Sex: Female

DRUGS (29)
  1. LOSARTAN. [Suspect]
     Active Substance: LOSARTAN
     Dosage: 50 MILLIGRAM
     Dates: start: 20140729, end: 20150125
  2. OXAPROZIN. [Concomitant]
     Active Substance: OXAPROZIN
     Indication: ARTHRITIS
     Dosage: 600 MILLIGRAM
  3. NAPROXEN. [Concomitant]
     Active Substance: NAPROXEN
     Dosage: 500 MILLIGRAM
  4. ONDANSETRON [Concomitant]
     Active Substance: ONDANSETRON
     Indication: NAUSEA
     Dosage: 8 MILLIGRAM
  5. TRAMADOL. [Concomitant]
     Active Substance: TRAMADOL
     Dosage: 50 MILLIGRAM
  6. ADALAT CC [Concomitant]
     Active Substance: NIFEDIPINE
     Dosage: 60 MILLIGRAM, QD
     Route: 048
  7. LOSARTAN. [Suspect]
     Active Substance: LOSARTAN
     Dosage: 50 MILLIGRAM
     Dates: start: 20150305, end: 20150326
  8. LOSARTAN. [Suspect]
     Active Substance: LOSARTAN
     Dosage: 25 MILLIGRAM
     Dates: start: 20150430, end: 20150824
  9. LOSARTAN. [Suspect]
     Active Substance: LOSARTAN
     Dosage: 25 MILLIGRAM
     Dates: start: 20151110, end: 20151122
  10. SAVELLA [Concomitant]
     Active Substance: MILNACIPRAN HYDROCHLORIDE
     Indication: DEPRESSION
     Dosage: 50 MILLIGRAM
  11. ONDANSETRON [Concomitant]
     Active Substance: ONDANSETRON
     Indication: VOMITING
  12. COZAAR [Concomitant]
     Active Substance: LOSARTAN POTASSIUM
     Dosage: 25 MILLIGRAM, QD
     Route: 048
  13. LOSARTAN. [Suspect]
     Active Substance: LOSARTAN
     Dosage: 25 MILLIGRAM
     Dates: start: 20160419, end: 20170228
  14. CIPROFLOXACIN. [Concomitant]
     Active Substance: CIPROFLOXACIN
     Indication: BACTERIAL INFECTION
     Dosage: 500 MILLIGRAM
  15. ULTRAM [Concomitant]
     Active Substance: TRAMADOL HYDROCHLORIDE
     Dosage: 50 MILLIGRAM, Q6H (1 TABLET)
     Route: 048
  16. TRAMADOL. [Concomitant]
     Active Substance: TRAMADOL
     Dosage: 50 MILLIGRAM
  17. NORCO [Concomitant]
     Active Substance: ACETAMINOPHEN\HYDROCODONE BITARTRATE
     Indication: PAIN
     Dosage: 5/325 MILLIGRAM, Q6H (1 TABLET)
     Route: 048
  18. LOSARTAN. [Suspect]
     Active Substance: LOSARTAN
     Dosage: 50 MILLIGRAM
     Dates: start: 20150221, end: 20150305
  19. LOSARTAN. [Suspect]
     Active Substance: LOSARTAN
     Dosage: 25 MILLIGRAM
     Dates: start: 20150403, end: 20150424
  20. LOSARTAN. [Suspect]
     Active Substance: LOSARTAN
     Dosage: 25 MILLIGRAM
     Dates: start: 20150824, end: 20151105
  21. LOSARTAN. [Suspect]
     Active Substance: LOSARTAN
     Dosage: 25 MILLIGRAM
     Dates: start: 20180426, end: 20181019
  22. NAPROXEN. [Concomitant]
     Active Substance: NAPROXEN
     Indication: PAIN
     Dosage: 250 MILLIGRAM
  23. VALSARTAN. [Suspect]
     Active Substance: VALSARTAN
     Indication: PRODUCT USED FOR UNKNOWN INDICATION
     Dosage: UNK
  24. LOSARTAN. [Suspect]
     Active Substance: LOSARTAN
     Indication: HYPERTENSION
     Dosage: 50 MILLIGRAM
     Dates: start: 20140502, end: 20140726
  25. LOSARTAN. [Suspect]
     Active Substance: LOSARTAN
     Indication: HYPERTENSION
     Dosage: 25 MILLIGRAM
     Dates: start: 20150128, end: 20150218
  26. LOSARTAN. [Suspect]
     Active Substance: LOSARTAN
     Dosage: 25 MILLIGRAM
     Dates: start: 20151125, end: 20160325
  27. TRAMADOL. [Concomitant]
     Active Substance: TRAMADOL
     Indication: PAIN
     Dosage: 37.5 MILLIGRAM
  28. CYMBALTA [Concomitant]
     Active Substance: DULOXETINE HYDROCHLORIDE
     Indication: PRODUCT USED FOR UNKNOWN INDICATION
     Dosage: 30 MILLIGRAM
  29. CELEBREX [Concomitant]
     Active Substance: CELECOXIB
     Indication: PAIN
     Dosage: 200 MILLIGRAM, BID
     Route: 048

REACTIONS (1)
  - Small intestine carcinoma [Unknown]

NARRATIVE: CASE EVENT DATE: 20160202
